FAERS Safety Report 22141571 (Version 1)
Quarter: 2023Q1

REPORT INFORMATION
  Report Type: Spontaneous
  Country: SE (occurrence: SE)
  Receive Date: 20230327
  Receipt Date: 20230327
  Transmission Date: 20230418
  Serious: Yes (Other)
  Sender: FDA-Public Use
  Company Number: None

PATIENT
  Age: 40 Year
  Sex: Male

DRUGS (1)
  1. LYRICA [Suspect]
     Active Substance: PREGABALIN
     Indication: Anxiety
     Dosage: UNK
     Route: 065
     Dates: start: 20150306, end: 20230106

REACTIONS (7)
  - Disorganised speech [Recovering/Resolving]
  - Aggression [Recovering/Resolving]
  - Dry skin [Recovering/Resolving]
  - Somnolence [Recovering/Resolving]
  - Dysarthria [Recovering/Resolving]
  - Fatigue [Recovering/Resolving]
  - Gait disturbance [Recovering/Resolving]

NARRATIVE: CASE EVENT DATE: 20230101
